FAERS Safety Report 6028989-8 (Version None)
Quarter: 2009Q1

REPORT INFORMATION
  Report Type: 
  Country: None (occurrence: None)
  Receive Date: 20090106
  Receipt Date: 20081229
  Transmission Date: 20090719
  Serious: Yes (Hospitalization, Other)
  Sender: FDA-Public Use
  Company Number: US-AMGEN-QUU326094

PATIENT
  Sex: Female

DRUGS (2)
  1. ENBREL [Suspect]
     Indication: ANKYLOSING SPONDYLITIS
     Route: 058
     Dates: start: 20060401, end: 20080401
  2. HUMIRA [Concomitant]
     Dates: start: 20080401

REACTIONS (3)
  - DRUG INEFFECTIVE [None]
  - INFECTION [None]
  - MUSCLE DISORDER [None]
